FAERS Safety Report 10098017 (Version 54)
Quarter: 2018Q4

REPORT INFORMATION
  Report Type: Report from Study
  Country: CA (occurrence: CA)
  Receive Date: 20140423
  Receipt Date: 20181121
  Transmission Date: 20190204
  Serious: Yes (Hospitalization, Other)
  Sender: FDA-Public Use
  Company Number: CA-ROCHE-1298604

PATIENT
  Age: 74 Year
  Sex: Male
  Weight: 70 kg

DRUGS (19)
  1. ACTEMRA [Suspect]
     Active Substance: TOCILIZUMAB
     Route: 042
     Dates: start: 20111103
  2. ACTEMRA [Suspect]
     Active Substance: TOCILIZUMAB
     Route: 042
     Dates: start: 20120103
  3. ACTEMRA [Suspect]
     Active Substance: TOCILIZUMAB
     Route: 042
     Dates: start: 20150626
  4. DICLOFENAC [Concomitant]
     Active Substance: DICLOFENAC
  5. ACTEMRA [Suspect]
     Active Substance: TOCILIZUMAB
     Route: 042
     Dates: start: 20110705
  6. ACTEMRA [Suspect]
     Active Substance: TOCILIZUMAB
     Route: 042
     Dates: start: 20170817
  7. QUETIAPINE. [Concomitant]
     Active Substance: QUETIAPINE
  8. METHOTREXATE. [Concomitant]
     Active Substance: METHOTREXATE
  9. ACTEMRA [Suspect]
     Active Substance: TOCILIZUMAB
     Route: 042
     Dates: start: 20140523
  10. ATORVASTATIN [Concomitant]
     Active Substance: ATORVASTATIN
  11. SERTRALINE [Concomitant]
     Active Substance: SERTRALINE HYDROCHLORIDE
  12. ACTEMRA [Suspect]
     Active Substance: TOCILIZUMAB
     Route: 042
     Dates: start: 20110222
  13. ACTEMRA [Suspect]
     Active Substance: TOCILIZUMAB
     Route: 042
     Dates: start: 20160505
  14. ACTEMRA [Suspect]
     Active Substance: TOCILIZUMAB
     Route: 042
     Dates: start: 20111006
  15. ACTEMRA [Suspect]
     Active Substance: TOCILIZUMAB
     Route: 042
     Dates: start: 20131008
  16. FOLIC ACID. [Concomitant]
     Active Substance: FOLIC ACID
  17. ACTEMRA [Suspect]
     Active Substance: TOCILIZUMAB
     Indication: RHEUMATOID ARTHRITIS
     Dosage: LAST DOSE RECEIVED ON 26/OCT/2010?ON HOLD
     Route: 042
     Dates: start: 20101123, end: 20171220
  18. ACTEMRA [Suspect]
     Active Substance: TOCILIZUMAB
     Route: 042
     Dates: start: 20111129
  19. ACTEMRA [Suspect]
     Active Substance: TOCILIZUMAB
     Route: 042
     Dates: start: 20120131

REACTIONS (29)
  - Lung neoplasm malignant [Not Recovered/Not Resolved]
  - Limb asymmetry [Unknown]
  - Oral herpes [Recovering/Resolving]
  - Infusion related reaction [Unknown]
  - Weight increased [Unknown]
  - Nasopharyngitis [Not Recovered/Not Resolved]
  - Hyperkeratosis [Unknown]
  - Limb injury [Recovered/Resolved]
  - Eating disorder [Unknown]
  - Rheumatoid arthritis [Unknown]
  - Soft tissue sarcoma [Recovered/Resolved]
  - Balance disorder [Not Recovered/Not Resolved]
  - Weight decreased [Recovered/Resolved]
  - Impaired healing [Not Recovered/Not Resolved]
  - Hyperkeratosis [Not Recovered/Not Resolved]
  - Anxiety [Unknown]
  - Spinal fracture [Unknown]
  - Wound [Recovering/Resolving]
  - Decreased appetite [Unknown]
  - Scratch [Unknown]
  - Skin cancer [Not Recovered/Not Resolved]
  - Osteoporosis [Not Recovered/Not Resolved]
  - Impaired healing [Recovered/Resolved]
  - Arthritis [Unknown]
  - Postoperative wound infection [Unknown]
  - Pulmonary oedema [Unknown]
  - Skin injury [Unknown]
  - Back pain [Unknown]
  - Arthralgia [Recovered/Resolved]

NARRATIVE: CASE EVENT DATE: 20131227
